FAERS Safety Report 15295369 (Version 1)
Quarter: 2018Q3

REPORT INFORMATION
  Report Type: Spontaneous
  Country: GB (occurrence: GB)
  Receive Date: 20180820
  Receipt Date: 20180820
  Transmission Date: 20181010
  Serious: Yes (Death, Hospitalization, Other)
  Sender: FDA-Public Use
  Company Number: PHHY2015GB027614

PATIENT
  Age: 75 Year
  Sex: Female

DRUGS (4)
  1. ACICLOVIR [Suspect]
     Active Substance: ACYCLOVIR
     Indication: ORAL HERPES
     Dosage: 200 MG, 5QD
     Route: 048
  2. ATENOLOL. [Concomitant]
     Active Substance: ATENOLOL
     Indication: HYPERTENSION
     Dosage: 50 MG, QD
     Route: 065
  3. ACICLOVIR [Suspect]
     Active Substance: ACYCLOVIR
     Indication: HERPES SIMPLEX ENCEPHALITIS
     Dosage: 10 MG/KG, TID OVER AN HOUR
     Route: 042
  4. NIFEDIPINE. [Concomitant]
     Active Substance: NIFEDIPINE
     Indication: HYPERTENSION
     Dosage: 60 MG, QD
     Route: 065

REACTIONS (14)
  - Herpes simplex encephalitis [Recovered/Resolved]
  - CSF lymphocyte count increased [Recovered/Resolved]
  - Oral candidiasis [Recovered/Resolved]
  - Lower respiratory tract infection [Fatal]
  - Facial paralysis [Unknown]
  - Polyuria [Recovered/Resolved]
  - Hallucination, visual [Recovered/Resolved]
  - Confusional state [Recovered/Resolved]
  - Acute kidney injury [Recovered/Resolved]
  - Myoclonus [Recovered/Resolved]
  - Lymphocyte count decreased [Recovered/Resolved]
  - Neurotoxicity [Recovered/Resolved]
  - Balance disorder [Recovered/Resolved]
  - Hypertonia [Recovered/Resolved]
